FAERS Safety Report 7960477-1 (Version None)
Quarter: 2011Q4

REPORT INFORMATION
  Report Type: 
  Country: None (occurrence: None)
  Receive Date: 20111206
  Receipt Date: 20111202
  Transmission Date: 20120403
  Serious: Yes (Other)
  Sender: FDA-Public Use
  Company Number: US-TEVA-312021USA

PATIENT

DRUGS (1)
  1. QVAR 40 [Suspect]
     Route: 055

REACTIONS (1)
  - CUSHINGOID [None]
